FAERS Safety Report 11629532 (Version 1)
Quarter: 2015Q4

REPORT INFORMATION
  Report Type: Spontaneous
  Country: US (occurrence: None)
  Receive Date: 20151013
  Receipt Date: 20151013
  Transmission Date: 20160304
  Serious: No
  Sender: FDA-Public Use
  Company Number: None

PATIENT
  Age: 34 Year
  Sex: Male
  Weight: 119.75 kg

DRUGS (4)
  1. LISINOPRIL. [Concomitant]
     Active Substance: LISINOPRIL
  2. ZYRTEC [Suspect]
     Active Substance: CETIRIZINE HYDROCHLORIDE
     Indication: MECHANICAL URTICARIA
     Route: 048
     Dates: start: 20100707, end: 20151011
  3. FENOFIBRATE. [Concomitant]
     Active Substance: FENOFIBRATE
  4. CENTRUM [Concomitant]
     Active Substance: VITAMINS

REACTIONS (6)
  - Lacrimation increased [None]
  - Rhinorrhoea [None]
  - Drug dose omission [None]
  - Eye pruritus [None]
  - Nasal pruritus [None]
  - Seasonal allergy [None]

NARRATIVE: CASE EVENT DATE: 20140820
